FAERS Safety Report 8779791 (Version 1)
Quarter: 2012Q4

REPORT INFORMATION
  Report Type: 
  Country: US (occurrence: US)
  Receive Date: 20120912
  Receipt Date: 20120912
  Transmission Date: 20130627
  Serious: Yes (Hospitalization)
  Sender: FDA-Public Use
  Company Number: US-ACTELION-A-US2012-67977

PATIENT
  Age: 32 Year
  Sex: Female

DRUGS (5)
  1. VELETRI [Suspect]
     Indication: PULMONARY ARTERIAL HYPERTENSION
     Dosage: 24 ng/kg, per min
     Route: 042
     Dates: start: 20120207
  2. ADCIRCA [Concomitant]
  3. LETAIRIS [Concomitant]
  4. COUMADIN [Concomitant]
  5. ASPIRIN [Concomitant]

REACTIONS (9)
  - Sensory disturbance [Recovered/Resolved]
  - Chest pain [Recovered/Resolved]
  - Palpitations [Recovered/Resolved]
  - Hypoaesthesia [Unknown]
  - Drug administration error [Unknown]
  - Malaise [Unknown]
  - Anxiety [Recovered/Resolved]
  - Flushing [Unknown]
  - Headache [Unknown]
